FAERS Safety Report 7964944-6 (Version None)
Quarter: 2011Q4

REPORT INFORMATION
  Report Type: 
  Country: None (occurrence: None)
  Receive Date: 20111208
  Receipt Date: 20111208
  Transmission Date: 20120403
  Serious: Yes (Life-Threatening, Hospitalization)
  Sender: FDA-Public Use
  Company Number: None

PATIENT
  Age: 20 Year
  Weight: 63.502 kg

DRUGS (1)
  1. LAMICTAL [Suspect]
     Indication: BIPOLAR DISORDER
     Dosage: 2 PILLS
     Route: 048
     Dates: start: 20110305, end: 20111207

REACTIONS (6)
  - VOMITING [None]
  - MUSCULOSKELETAL STIFFNESS [None]
  - VISUAL IMPAIRMENT [None]
  - HEADACHE [None]
  - NAUSEA [None]
  - MENINGITIS VIRAL [None]
